FAERS Safety Report 22221019 (Version 1)
Quarter: 2023Q2

REPORT INFORMATION
  Report Type: Report from Study
  Country: US (occurrence: US)
  Receive Date: 20230418
  Receipt Date: 20230418
  Transmission Date: 20230721
  Serious: Yes (Hospitalization)
  Sender: FDA-Public Use
  Company Number: US-ABBVIE-4730559

PATIENT
  Age: 28 Year
  Sex: Female

DRUGS (1)
  1. RINVOQ [Suspect]
     Active Substance: UPADACITINIB
     Indication: Product used for unknown indication
     Dosage: FIRST ADMIN DATE: 07 FEB 2023
     Route: 048
     Dates: end: 20230317

REACTIONS (5)
  - Tachycardia [Recovered/Resolved]
  - Decreased appetite [Unknown]
  - Fatigue [Unknown]
  - Pyrexia [Recovered/Resolved]
  - Hypotension [Recovered/Resolved]

NARRATIVE: CASE EVENT DATE: 20230201
